FAERS Safety Report 15541611 (Version 2)
Quarter: 2018Q4

REPORT INFORMATION
  Report Type: Spontaneous
  Country: CH (occurrence: CH)
  Receive Date: 20181023
  Receipt Date: 20181104
  Transmission Date: 20190205
  Serious: Yes (Life-Threatening, Hospitalization)
  Sender: FDA-Public Use
  Company Number: CH-PFIZER INC-2018431678

PATIENT
  Age: 54 Year
  Sex: Female

DRUGS (5)
  1. CONCOR [Suspect]
     Active Substance: BISOPROLOL FUMARATE
     Dosage: 75 MG, UNK
  2. SIRDALUD [Suspect]
     Active Substance: TIZANIDINE
     Dosage: 80 MG, UNK
  3. EFFEXOR XR [Suspect]
     Active Substance: VENLAFAXINE HYDROCHLORIDE
     Indication: DEPRESSION
     Dosage: 10500 MG, UNK
  4. LISINOPRIL. [Suspect]
     Active Substance: LISINOPRIL
     Dosage: 900 MG, UNK
  5. TRITTICO [Suspect]
     Active Substance: TRAZODONE HYDROCHLORIDE
     Indication: DEPRESSION
     Dosage: 2000 MG, UNK

REACTIONS (5)
  - Hypotension [Recovered/Resolved]
  - Depressed level of consciousness [Unknown]
  - Somnolence [Unknown]
  - Toxicity to various agents [Recovered/Resolved]
  - Electrocardiogram QT prolonged [Unknown]
